FAERS Safety Report 13197344 (Version 2)
Quarter: 2017Q1

REPORT INFORMATION
  Report Type: Spontaneous
  Country: BE (occurrence: BE)
  Receive Date: 20170208
  Receipt Date: 20170227
  Transmission Date: 20170428
  Serious: Yes (Hospitalization)
  Sender: FDA-Public Use
  Company Number: BE-TAKEDA-2017TUS002999

PATIENT
  Age: 77 Year
  Sex: Male
  Weight: 67.5 kg

DRUGS (9)
  1. ADENURIC [Suspect]
     Active Substance: FEBUXOSTAT
     Indication: HYPERURICAEMIA
  2. LORMETAZEPAM SANDOZ [Concomitant]
     Dosage: 0.5 MG, QD
     Dates: start: 20161213
  3. NEORAL-SANDIMMUN [Concomitant]
     Active Substance: CYCLOSPORINE
     Dosage: 50 MG, BID
     Dates: start: 20170118
  4. ADENURIC [Suspect]
     Active Substance: FEBUXOSTAT
     Indication: GOUT
     Dosage: 80 MG, QD
     Route: 065
     Dates: start: 20161019, end: 20161024
  5. COVERAM [Concomitant]
     Active Substance: AMLODIPINE\PERINDOPRIL
     Dosage: UNK, QD
     Dates: start: 20161213
  6. SINTROM [Concomitant]
     Active Substance: ACENOCOUMAROL
     Dosage: 1 MG, QID
     Dates: start: 20161213
  7. NEORAL-SANDIMMUN [Concomitant]
     Active Substance: CYCLOSPORINE
     Dosage: 25 MG, BID
     Dates: start: 20170118
  8. NOVONORM [Concomitant]
     Active Substance: REPAGLINIDE
     Dosage: 0.5 MG, QD
     Dates: start: 20160330
  9. PANTOMED                           /01263204/ [Concomitant]
     Active Substance: PANTOPRAZOLE SODIUM
     Dosage: 20 MG, QD
     Dates: start: 20161213

REACTIONS (3)
  - Body temperature increased [Unknown]
  - Pruritus [Unknown]
  - Rash [Recovered/Resolved]

NARRATIVE: CASE EVENT DATE: 201610
